FAERS Safety Report 8877676 (Version 1)
Quarter: 2012Q4

REPORT INFORMATION
  Report Type: Spontaneous
  Country: BR (occurrence: None)
  Receive Date: 20121025
  Receipt Date: 20121025
  Transmission Date: 20130627
  Serious: Yes (Other)
  Sender: FDA-Public Use
  Company Number: BR-1194727

PATIENT
  Age: 25 Year
  Sex: Male

DRUGS (4)
  1. MAXIDEX [Suspect]
     Indication: POSTOPERATIVE CARE
     Dosage: 0.1 pct QID OD Ophthalmic
     Route: 047
  2. KETOROLAC TROMETHAMINE [Suspect]
     Indication: POSTOPERATIVE CARE
     Dosage: 0.4 % BID OD Ophthalmic
     Route: 047
  3. GATIFLOXACIN [Concomitant]
  4. EPITEGEL [Concomitant]

REACTIONS (8)
  - Ulcerative keratitis [None]
  - Corneal thinning [None]
  - Corneal opacity [None]
  - Corneal scar [None]
  - Corneal infiltrates [None]
  - Eye pain [None]
  - Ocular hyperaemia [None]
  - Drug administration error [None]
